FAERS Safety Report 7824486-5 (Version None)
Quarter: 2011Q4

REPORT INFORMATION
  Report Type: 
  Country: None (occurrence: None)
  Receive Date: 20111014
  Receipt Date: 20110928
  Transmission Date: 20120403
  Serious: Yes (Life-Threatening)
  Sender: FDA-Public Use
  Company Number: TCI2011A04249

PATIENT
  Age: 67 Year
  Sex: Male

DRUGS (2)
  1. ACTOS [Suspect]
     Indication: DIABETES MELLITUS
     Dosage: PER ORAL, 15 MG (15 MG, 1 IN 1 D) 1) PER ORAL
     Route: 048
     Dates: start: 20080201
  2. ACTOS [Suspect]
     Indication: DIABETES MELLITUS
     Dosage: PER ORAL, 15 MG (15 MG, 1 IN 1 D) 1) PER ORAL
     Route: 048
     Dates: start: 20090407, end: 20110614

REACTIONS (2)
  - BLOOD URINE PRESENT [None]
  - BLADDER CANCER [None]
